FAERS Safety Report 26057614 (Version 1)
Quarter: 2025Q4

REPORT INFORMATION
  Report Type: Spontaneous
  Country: US (occurrence: None)
  Receive Date: 20251118
  Receipt Date: 20251118
  Transmission Date: 20260117
  Serious: No
  Sender: UCB
  Company Number: US-UCBSA-2025040457

PATIENT

DRUGS (8)
  1. KEPPRA [Suspect]
     Active Substance: LEVETIRACETAM
     Indication: Partial seizures
  2. KEPPRA [Suspect]
     Active Substance: LEVETIRACETAM
     Indication: Encephalitis autoimmune
  3. KEPPRA [Suspect]
     Active Substance: LEVETIRACETAM
     Indication: Stiff person syndrome
  4. VIMPAT [Suspect]
     Active Substance: LACOSAMIDE
     Indication: Partial seizures
  5. VIMPAT [Suspect]
     Active Substance: LACOSAMIDE
     Indication: Encephalitis autoimmune
  6. VIMPAT [Suspect]
     Active Substance: LACOSAMIDE
     Indication: Stiff person syndrome
  7. XCOPRI [Concomitant]
     Active Substance: CENOBAMATE
     Indication: Product used for unknown indication
  8. ZONISAMIDE [Concomitant]
     Active Substance: ZONISAMIDE
     Indication: Product used for unknown indication

REACTIONS (4)
  - Drug ineffective [Unknown]
  - Product use in unapproved indication [Unknown]
  - Decreased appetite [Not Recovered/Not Resolved]
  - Hypersomnia [Not Recovered/Not Resolved]
